FAERS Safety Report 20751962 (Version 3)
Quarter: 2022Q3

REPORT INFORMATION
  Report Type: Report from Study
  Country: PL (occurrence: PL)
  Receive Date: 20220426
  Receipt Date: 20220823
  Transmission Date: 20221027
  Serious: Yes (Death)
  Sender: FDA-Public Use
  Company Number: PL-Merck Healthcare KGaA-9289587

PATIENT
  Age: 65 Year
  Sex: Male

DRUGS (4)
  1. IRINOTECAN HYDROCHLORIDE [Suspect]
     Active Substance: IRINOTECAN HYDROCHLORIDE
     Indication: Colorectal cancer metastatic
     Dosage: FREQ:2 WK; 346 (UNSPECIFIED UNIT)
     Route: 042
     Dates: start: 20200824, end: 20210203
  2. LEUCOVORIN [Suspect]
     Active Substance: LEUCOVORIN
     Indication: Colorectal cancer metastatic
     Dosage: FREQ:2 WK; 385 (UNSPECIFIED UNIT)
     Route: 042
     Dates: start: 20200824, end: 20210203
  3. FLUOROURACIL [Suspect]
     Active Substance: FLUOROURACIL
     Indication: Colorectal cancer metastatic
     Dosage: FREQ:2 WK; 768 (UNSPECIFIED UNIT)
     Route: 042
     Dates: start: 20200824, end: 20210203
  4. CETUXIMAB [Suspect]
     Active Substance: CETUXIMAB
     Indication: Colorectal cancer metastatic
     Dosage: 960 (UNSPECIFIED UNIT)
     Route: 042
     Dates: start: 20200824, end: 20210203

REACTIONS (1)
  - Death [Fatal]

NARRATIVE: CASE EVENT DATE: 20210207
